FAERS Safety Report 25211996 (Version 1)
Quarter: 2025Q2

REPORT INFORMATION
  Report Type: Spontaneous
  Country: US (occurrence: US)
  Receive Date: 20250418
  Receipt Date: 20250418
  Transmission Date: 20250717
  Serious: No
  Sender: TEVA
  Company Number: US-TEVA-VS-3318926

PATIENT
  Age: 36 Year
  Sex: Male

DRUGS (1)
  1. UZEDY [Suspect]
     Active Substance: RISPERIDONE
     Indication: Bipolar I disorder
     Route: 058
     Dates: start: 20250301, end: 20250403

REACTIONS (3)
  - Trismus [Recovering/Resolving]
  - Product use in unapproved indication [Unknown]
  - Drooling [Recovering/Resolving]

NARRATIVE: CASE EVENT DATE: 20250402
